FAERS Safety Report 18929715 (Version 3)
Quarter: 2021Q2

REPORT INFORMATION
  Report Type: Report from Study
  Country: US (occurrence: US)
  Receive Date: 20210223
  Receipt Date: 20210617
  Transmission Date: 20210717
  Serious: No
  Sender: FDA-Public Use
  Company Number: NVSC2021US035851

PATIENT
  Sex: Male

DRUGS (1)
  1. ENTRESTO [Suspect]
     Active Substance: SACUBITRIL\VALSARTAN
     Indication: PRODUCT USED FOR UNKNOWN INDICATION
     Dosage: UNK
     Route: 065

REACTIONS (11)
  - Weight decreased [Recovering/Resolving]
  - Product dose omission issue [Unknown]
  - Hypotension [Unknown]
  - Ejection fraction abnormal [Recovering/Resolving]
  - Pain [Unknown]
  - Cough [Unknown]
  - Heart rate increased [Recovering/Resolving]
  - Listless [Unknown]
  - Inappropriate schedule of product administration [Unknown]
  - Pain in extremity [Unknown]
  - Asthenia [Unknown]
